FAERS Safety Report 24031398 (Version 3)
Quarter: 2025Q3

REPORT INFORMATION
  Report Type: Spontaneous
  Country: US (occurrence: US)
  Receive Date: 20240629
  Receipt Date: 20250804
  Transmission Date: 20251021
  Serious: Yes (Hospitalization, Other)
  Sender: CIPLA
  Company Number: US-CIPLA LTD.-2024US05626

PATIENT

DRUGS (2)
  1. TESTOSTERONE [Suspect]
     Active Substance: TESTOSTERONE
     Indication: Product used for unknown indication
     Route: 065
  2. COCAINE [Suspect]
     Active Substance: COCAINE
     Indication: Product used for unknown indication
     Route: 065

REACTIONS (6)
  - Portal vein thrombosis [Recovering/Resolving]
  - Portal vein cavernous transformation [Recovering/Resolving]
  - Gastrointestinal oedema [Unknown]
  - Ascites [Unknown]
  - Self-medication [Unknown]
  - Gastrointestinal haemorrhage [Unknown]
